FAERS Safety Report 5328404-3 (Version None)
Quarter: 2007Q2

REPORT INFORMATION
  Report Type: 
  Country: None (occurrence: None)
  Receive Date: 20070518
  Receipt Date: 20070509
  Transmission Date: 20071010
  Serious: Yes (Life-Threatening, Hospitalization, Other)
  Sender: FDA-Public Use
  Company Number: CZ-ASTRAZENECA-2007SE02423

PATIENT
  Age: 28293 Day
  Sex: Male

DRUGS (21)
  1. CRESTOR [Suspect]
     Indication: RENAL FAILURE CHRONIC
     Route: 048
     Dates: start: 20040924
  2. SEDACORON [Interacting]
     Indication: ATRIAL FIBRILLATION
     Dosage: DURING DIALYSIS
     Route: 042
     Dates: start: 20070424, end: 20070424
  3. SEDACORON [Interacting]
     Dosage: DURING DIALYSIS
     Route: 042
     Dates: start: 20070426, end: 20070426
  4. SEDACORON [Interacting]
     Route: 048
     Dates: start: 20070426, end: 20070428
  5. CALCIUM CARBONICUM [Concomitant]
     Indication: PROPHYLAXIS
     Route: 048
     Dates: start: 20031203
  6. EPREX [Concomitant]
     Indication: NEPHROGENIC ANAEMIA
     Route: 042
     Dates: start: 20031022
  7. FERRLECIT [Concomitant]
     Indication: NEPHROGENIC ANAEMIA
     Route: 042
     Dates: start: 20040629
  8. FURORESE [Concomitant]
     Indication: RESIDUAL URINE
     Route: 048
     Dates: start: 20030925
  9. HYPNOGEN [Concomitant]
     Indication: INSOMNIA
     Route: 048
     Dates: start: 20040727
  10. MILURIT [Concomitant]
     Indication: RENAL FAILURE
     Route: 048
     Dates: start: 20030925
  11. TAGREN [Concomitant]
     Indication: THROMBOSIS PROPHYLAXIS
     Route: 048
     Dates: start: 20041029, end: 20060102
  12. TAGREN [Concomitant]
     Route: 048
     Dates: start: 20060310, end: 20070124
  13. TAGREN [Concomitant]
     Route: 048
     Dates: start: 20070213
  14. ROCALTROL [Concomitant]
     Indication: RENAL FAILURE CHRONIC
     Route: 048
     Dates: start: 20050104
  15. RANISAN [Concomitant]
     Indication: DYSPEPSIA
     Route: 048
     Dates: start: 20050104
  16. BETAHIREX [Concomitant]
     Indication: VERTIGO
     Route: 048
     Dates: start: 20060302
  17. PROLEKOFEN [Concomitant]
     Indication: ATRIAL FIBRILLATION
     Route: 048
     Dates: start: 20061221, end: 20070426
  18. FOSRENOL [Concomitant]
     Indication: RENAL FAILURE CHRONIC
     Route: 048
     Dates: start: 20070109
  19. ENELBIN RETARD [Concomitant]
     Indication: INTERMITTENT CLAUDICATION
     Route: 048
     Dates: start: 20060620, end: 20060822
  20. ENELBIN RETARD [Concomitant]
     Route: 048
     Dates: start: 20061228, end: 20070206
  21. ENELBIN RETARD [Concomitant]
     Route: 048
     Dates: start: 20070207

REACTIONS (3)
  - DRUG INTERACTION [None]
  - SICK SINUS SYNDROME [None]
  - TORSADE DE POINTES [None]
